FAERS Safety Report 10410030 (Version 2)
Quarter: 2014Q3

REPORT INFORMATION
  Report Type: Report from Study
  Country: BR (occurrence: BR)
  Receive Date: 20140826
  Receipt Date: 20140826
  Transmission Date: 20150326
  Serious: Yes (Death, Hospitalization, Other)
  Sender: FDA-Public Use
  Company Number: PHHY2014BR096361

PATIENT
  Age: 88 Year
  Sex: Male
  Weight: 52 kg

DRUGS (7)
  1. LEVOID [Concomitant]
     Active Substance: LEVOTHYROXINE
     Indication: HYPOTHYROIDISM
     Dosage: 25 MG, UNK
     Dates: start: 2005, end: 20140714
  2. EUTIROX [Concomitant]
     Active Substance: LEVOTHYROXINE SODIUM
     Indication: HYPOTHYROIDISM
     Dosage: 50 MG, UNK
     Dates: start: 2005, end: 20140714
  3. METFORMIN [Suspect]
     Active Substance: METFORMIN HYDROCHLORIDE
     Indication: DIABETES MELLITUS
     Dosage: 0.5 TABLET IN THE MORNING, 0.5 TABLET IN THE AFTERNOON AND 0.5 TABLET AT NIGHT
     Route: 048
     Dates: start: 2005, end: 201310
  4. GALVUS [Suspect]
     Active Substance: VILDAGLIPTIN
     Indication: DIABETES MELLITUS
     Dosage: 1 TABLET (50 MG) AFTER LUNCH AND 1 TABLET (50 MG) AFTER THE DINNER
     Route: 048
     Dates: start: 20131031, end: 20140712
  5. GLIMEPIRIDE. [Concomitant]
     Active Substance: GLIMEPIRIDE
     Indication: DIABETES MELLITUS
     Dosage: 1 TABLET (2 MG), A DAY
     Dates: start: 20131031, end: 20140710
  6. OMEPRAZOLE. [Concomitant]
     Active Substance: OMEPRAZOLE
     Indication: GASTROINTESTINAL DISORDER
     Dosage: 20 MG, UNK
     Dates: start: 2005, end: 20140714
  7. ENALAPRIL [Concomitant]
     Active Substance: ENALAPRIL
     Indication: HYPERTENSION
     Dosage: 1 TABLET (5 MG), AFTER THE BREAKFAST
     Dates: start: 2005, end: 20140714

REACTIONS (8)
  - Malignant neoplasm progression [Fatal]
  - Pain in extremity [Unknown]
  - Staphylococcal infection [Fatal]
  - Renal failure [Fatal]
  - Skin injury [Not Recovered/Not Resolved]
  - Chest pain [Unknown]
  - Pain [Unknown]
  - Headache [Unknown]

NARRATIVE: CASE EVENT DATE: 201401
